FAERS Safety Report 9994990 (Version 1)
Quarter: 2014Q1

REPORT INFORMATION
  Report Type: Spontaneous
  Country: US (occurrence: None)
  Receive Date: 20140225
  Receipt Date: 20140225
  Transmission Date: 20141002
  Serious: Yes (Other)
  Sender: FDA-Public Use
  Company Number: 2013-313

PATIENT
  Age: 82 Year
  Sex: Male
  Weight: 61.2 kg

DRUGS (2)
  1. PRIALT (ZICONOTIDE) INTRATHECAL INFUSION [Suspect]
     Indication: PAIN
     Dosage: 0.197 UG/HOUR, INTRATHECAL
     Route: 037
     Dates: start: 20130408, end: 20130612
  2. LISINOPRIL (LISINOPRIL) [Concomitant]

REACTIONS (5)
  - Hypotension [None]
  - Muscular weakness [None]
  - Balance disorder [None]
  - Vision blurred [None]
  - Hallucination, auditory [None]
